FAERS Safety Report 9402964 (Version 1)
Quarter: 2013Q3

REPORT INFORMATION
  Report Type: Spontaneous
  Country: US (occurrence: None)
  Receive Date: 20130715
  Receipt Date: 20130715
  Transmission Date: 20140515
  Serious: Yes (Hospitalization)
  Sender: FDA-Public Use
  Company Number: None

PATIENT
  Age: 38 None
  Sex: Male
  Weight: 70 kg

DRUGS (12)
  1. SIROLIMUS [Suspect]
     Indication: IMMUNOSUPPRESSANT DRUG THERAPY
     Dosage: ALTERNATING WITH 1.5 MG QOD, 2 MONTHS DURATION.
     Dates: start: 20130313
  2. ALLOPURINOL [Concomitant]
  3. AMLODIPINE [Concomitant]
  4. MAGNESIUM OXIDE [Concomitant]
  5. CALCITRIOL [Concomitant]
  6. PENICILLIN VK [Concomitant]
  7. ACYCLOVIR [Concomitant]
  8. METOPROLOL [Concomitant]
  9. CHOLECALCIFEROL [Concomitant]
  10. NYSTATIN [Concomitant]
  11. SIROLIMUS [Concomitant]
  12. DARBEPOIETIN [Concomitant]

REACTIONS (1)
  - Rhabdomyolysis [None]
